FAERS Safety Report 25643021 (Version 1)
Quarter: 2025Q3

REPORT INFORMATION
  Report Type: Spontaneous
  Country: US (occurrence: US)
  Receive Date: 20250805
  Receipt Date: 20250805
  Transmission Date: 20251021
  Serious: No
  Sender: AMGEN
  Company Number: US-AMGEN-USASP2025150892

PATIENT
  Age: 66 Year
  Sex: Female

DRUGS (1)
  1. PROLIA [Suspect]
     Active Substance: DENOSUMAB
     Indication: Product used for unknown indication
     Dosage: UNK UNK, Q6MO (TWICE A YEAR)
     Route: 065

REACTIONS (5)
  - Loose tooth [Unknown]
  - Dermatitis contact [Unknown]
  - Pruritus [Unknown]
  - Swelling face [Unknown]
  - Osteopenia [Unknown]

NARRATIVE: CASE EVENT DATE: 20250101
